FAERS Safety Report 6783394-1 (Version None)
Quarter: 2010Q2

REPORT INFORMATION
  Report Type: 
  Country: None (occurrence: None)
  Receive Date: 20100622
  Receipt Date: 20100618
  Transmission Date: 20101027
  Serious: Yes (Death)
  Sender: FDA-Public Use
  Company Number: PHHY2010CA38550

PATIENT
  Sex: Male
  Weight: 58 kg

DRUGS (9)
  1. EXELON [Suspect]
     Indication: DEMENTIA ALZHEIMER'S TYPE
     Dosage: 1 PATCH DAILY
     Route: 062
     Dates: start: 20090630
  2. PANTOPRAZOLE [Concomitant]
     Dosage: UNK,
  3. LORAZEPAM [Concomitant]
  4. ALLOPURINOL [Concomitant]
     Dosage: UNK,
  5. ALENDRONATE SODIUM [Concomitant]
  6. ADALAT [Concomitant]
     Dosage: UNK,
  7. ASPIRIN [Concomitant]
     Dosage: UNK,
  8. FLOMAX [Concomitant]
     Dosage: UNK,
  9. SENOKOT [Concomitant]
     Dosage: UNK,

REACTIONS (2)
  - GASTRITIS EROSIVE [None]
  - GASTROINTESTINAL HAEMORRHAGE [None]
